FAERS Safety Report 12778720 (Version 2)
Quarter: 2016Q4

REPORT INFORMATION
  Report Type: Spontaneous
  Country: US (occurrence: US)
  Receive Date: 20160926
  Receipt Date: 20161004
  Transmission Date: 20170207
  Serious: Yes (Hospitalization)
  Sender: FDA-Public Use
  Company Number: US-BEH-2016073703

PATIENT
  Sex: Female

DRUGS (1)
  1. HIZENTRA [Suspect]
     Active Substance: HUMAN IMMUNOGLOBULIN G
     Indication: PRODUCT USED FOR UNKNOWN INDICATION
     Dosage: 10 G, UNK
     Route: 065
     Dates: start: 2014

REACTIONS (5)
  - Chronic obstructive pulmonary disease [Unknown]
  - Infusion site bruising [Unknown]
  - Asthma [Unknown]
  - Infusion site pain [Unknown]
  - Otitis media [Unknown]

NARRATIVE: CASE EVENT DATE: 201607
